FAERS Safety Report 8507093-0 (Version None)
Quarter: 2012Q3

REPORT INFORMATION
  Report Type: 
  Country: None (occurrence: None)
  Receive Date: 20120712
  Receipt Date: 20120704
  Transmission Date: 20120928
  Serious: No
  Sender: FDA-Public Use
  Company Number: US-JNJFOC-20120605465

PATIENT
  Sex: Female

DRUGS (3)
  1. REMICADE [Suspect]
     Indication: CROHN'S DISEASE
     Route: 042
     Dates: start: 20120101
  2. REMICADE [Suspect]
     Route: 042
     Dates: start: 20100101
  3. REMICADE [Suspect]
     Route: 042
     Dates: start: 20120504

REACTIONS (4)
  - SKIN REACTION [None]
  - ARTHRALGIA [None]
  - URINARY TRACT INFECTION [None]
  - INFUSION RELATED REACTION [None]
